FAERS Safety Report 8330237-0 (Version None)
Quarter: 2012Q2

REPORT INFORMATION
  Report Type: 
  Country: None (occurrence: None)
  Receive Date: 20120502
  Receipt Date: 20120420
  Transmission Date: 20120825
  Serious: Yes (Other)
  Sender: FDA-Public Use
  Company Number: ES-CTI_01463_2012

PATIENT
  Age: 90 Year
  Sex: Female

DRUGS (1)
  1. MEIACT MS - CEFDITOREN PIVOXIL [Suspect]
     Indication: BRONCHIECTASIS
     Dosage: DAILY DOSE UNKNOWN
     Route: 048
     Dates: start: 20120314, end: 20120315

REACTIONS (3)
  - CONFUSIONAL STATE [None]
  - CONFABULATION [None]
  - AGGRESSION [None]
